FAERS Safety Report 6032195-0 (Version None)
Quarter: 2009Q1

REPORT INFORMATION
  Report Type: 
  Country: None (occurrence: None)
  Receive Date: 20090108
  Receipt Date: 20081230
  Transmission Date: 20090719
  Serious: Yes (Hospitalization, Other)
  Sender: FDA-Public Use
  Company Number: AU-ROXANE LABORATORIES, INC.-2008-RO-00501RO

PATIENT
  Age: 33 Year
  Sex: Female

DRUGS (4)
  1. CITALOPRAM HYDROBROMIDE [Suspect]
     Indication: DEPRESSION
  2. INTERFERON ALFA [Suspect]
     Indication: HEPATITIS C
  3. QUETIAPINE FUMARATE [Suspect]
     Indication: ANXIETY
  4. QUETIAPINE FUMARATE [Suspect]

REACTIONS (5)
  - ASTHENIA [None]
  - DISTURBANCE IN ATTENTION [None]
  - MANIA [None]
  - MENTAL DISORDER [None]
  - VIRAL INFECTION [None]
